FAERS Safety Report 4863119-7 (Version None)
Quarter: 2005Q4

REPORT INFORMATION
  Report Type: 
  Country: None (occurrence: None)
  Receive Date: 20051219
  Receipt Date: 20051205
  Transmission Date: 20060501
  Serious: Yes (Hospitalization)
  Sender: FDA-Public Use
  Company Number: FEI2005-3065

PATIENT
  Age: 32 Year
  Sex: Female

DRUGS (1)
  1. INTRAUTERINE COPPER CONTRACEPTIVE [Suspect]
     Indication: CONTRACEPTION
     Dosage: INTRA-UTERINE
     Route: 015
     Dates: start: 19990101, end: 20050609

REACTIONS (10)
  - ABORTION SPONTANEOUS [None]
  - CHORIOAMNIONITIS [None]
  - FOREIGN BODY TRAUMA [None]
  - INTRA-UTERINE CONTRACEPTIVE DEVICE EXPELLED [None]
  - IUCD COMPLICATION [None]
  - METRORRHAGIA [None]
  - PREGNANCY WITH CONTRACEPTIVE DEVICE [None]
  - PYELONEPHRITIS [None]
  - PYREXIA [None]
  - VAGINAL HAEMORRHAGE [None]
